FAERS Safety Report 5041649-5 (Version None)
Quarter: 2006Q2

REPORT INFORMATION
  Report Type: 
  Country: None (occurrence: None)
  Receive Date: 20060601
  Receipt Date: 20060223
  Transmission Date: 20061013
  Serious: No
  Sender: FDA-Public Use
  Company Number: 2006PV009153

PATIENT
  Age: 77 Year
  Sex: Female
  Weight: 88.905 kg

DRUGS (8)
  1. BYETTA [Suspect]
     Indication: DIABETES MELLITUS NON-INSULIN-DEPENDENT
     Dosage: 5 MCG; BID; SC
     Route: 058
     Dates: end: 20060223
  2. AVANDIA [Concomitant]
  3. ACTONEL [Concomitant]
  4. COREG [Concomitant]
  5. NEXIUM [Concomitant]
  6. PLAVIX [Concomitant]
  7. LIPITOR [Concomitant]
  8. SPIRONOLACTONE [Concomitant]

REACTIONS (2)
  - ANOREXIA [None]
  - WEIGHT DECREASED [None]
